FAERS Safety Report 17562307 (Version 1)
Quarter: 2020Q1

REPORT INFORMATION
  Report Type: Spontaneous
  Country: JP (occurrence: JP)
  Receive Date: 20200319
  Receipt Date: 20200319
  Transmission Date: 20200409
  Serious: Yes (Hospitalization)
  Sender: FDA-Public Use
  Company Number: JP-BAUSCH-BL-2020-007786

PATIENT
  Age: 68 Year
  Sex: Female

DRUGS (6)
  1. PREDNISOLONE. [Suspect]
     Active Substance: PREDNISOLONE
     Dosage: UNKNOWN DATE IN SEPTEMBER IT WAS DISCONTINUED
     Route: 065
  2. DEXAMETHASONE. [Suspect]
     Active Substance: DEXAMETHASONE
     Indication: PRODUCT USED FOR UNKNOWN INDICATION
     Route: 065
  3. POTASSIUM IODIDE. [Concomitant]
     Active Substance: POTASSIUM IODIDE
     Dosage: INCREASED THE DOSE
  4. NIVOLUMAB [Concomitant]
     Active Substance: NIVOLUMAB
     Indication: VAGINAL CANCER RECURRENT
     Dosage: UNKNOWN DATE IN APRIL
  5. PREDNISOLONE. [Suspect]
     Active Substance: PREDNISOLONE
     Indication: THROMBOPHLEBITIS
     Dosage: UNKNOWN DATE IN APRIL
     Route: 065
  6. POTASSIUM IODIDE. [Concomitant]
     Active Substance: POTASSIUM IODIDE
     Indication: BASEDOW^S DISEASE

REACTIONS (2)
  - Drug resistance [Unknown]
  - Adrenal insufficiency [Unknown]
